FAERS Safety Report 6130059-5 (Version None)
Quarter: 2009Q1

REPORT INFORMATION
  Report Type: 
  Country: None (occurrence: None)
  Receive Date: 20090324
  Receipt Date: 20090317
  Transmission Date: 20090719
  Serious: Yes (Life-Threatening, Hospitalization, Disabling, Other)
  Sender: FDA-Public Use
  Company Number: FI-ABBOTT-08P-055-0439610-00

PATIENT
  Age: 42 Year
  Sex: Male

DRUGS (13)
  1. HUMIRA [Suspect]
     Indication: PSORIATIC ARTHROPATHY
     Route: 058
     Dates: start: 20051101, end: 20071110
  2. HUMIRA [Suspect]
     Indication: ANKYLOSING SPONDYLITIS
  3. SANDIMMUNE [Concomitant]
     Indication: PSORIASIS
     Route: 048
     Dates: start: 20070426, end: 20071110
  4. SANDIMMUNE [Concomitant]
  5. METHOTREXATE [Concomitant]
     Indication: DRUG USE FOR UNKNOWN INDICATION
  6. TREXAN [Concomitant]
     Indication: DRUG USE FOR UNKNOWN INDICATION
  7. HYDANTIN [Concomitant]
     Indication: CONVULSION PROPHYLAXIS
  8. HYDANTIN [Concomitant]
     Dosage: 250 MG + 250 MG
  9. HYDANTIN [Concomitant]
     Dosage: 100 MG 1.5 X 2
  10. ZOVIRAX [Concomitant]
     Indication: DRUG USE FOR UNKNOWN INDICATION
     Route: 042
  11. ROCEPHIN [Concomitant]
     Indication: DRUG USE FOR UNKNOWN INDICATION
     Route: 042
  12. DOXIMYCIN [Concomitant]
     Indication: DRUG USE FOR UNKNOWN INDICATION
     Dosage: 100 MG 1 X 2
  13. FRAGMIN [Concomitant]
     Indication: DRUG USE FOR UNKNOWN INDICATION

REACTIONS (18)
  - ACTIVITIES OF DAILY LIVING IMPAIRED [None]
  - ANKYLOSING SPONDYLITIS [None]
  - APRAXIA [None]
  - ARTHROPATHY [None]
  - BRADYPHRENIA [None]
  - BRAIN INJURY [None]
  - DRUG INEFFECTIVE [None]
  - ELECTROENCEPHALOGRAM ABNORMAL [None]
  - ERYTHRODERMIC PSORIASIS [None]
  - HEMISENSORY NEGLECT [None]
  - LOSS OF CONSCIOUSNESS [None]
  - LYMPHOPENIA [None]
  - MALAISE [None]
  - MEMORY IMPAIRMENT [None]
  - MENINGOENCEPHALITIS HERPETIC [None]
  - PSORIASIS [None]
  - PSORIATIC ARTHROPATHY [None]
  - SACROILIITIS [None]
